FAERS Safety Report 6904876-5 (Version None)
Quarter: 2010Q3

REPORT INFORMATION
  Report Type: 
  Country: None (occurrence: None)
  Receive Date: 20100804
  Receipt Date: 20090724
  Transmission Date: 20110219
  Serious: No
  Sender: FDA-Public Use
  Company Number: US-PFIZER INC-2009246835

PATIENT
  Sex: Female
  Weight: 69.388 kg

DRUGS (4)
  1. LYRICA [Suspect]
     Indication: FIBROMYALGIA
     Dosage: 50 MG, 1X/DAY
     Dates: start: 20090714
  2. LYRICA [Suspect]
     Indication: RESTLESS LEGS SYNDROME
  3. LYRICA [Suspect]
     Indication: PAIN
  4. HYDROCODONE BITARTRATE [Concomitant]
     Dosage: UNK

REACTIONS (1)
  - SOMNOLENCE [None]
